FAERS Safety Report 21394727 (Version 1)
Quarter: 2022Q3

REPORT INFORMATION
  Report Type: Spontaneous
  Country: KR (occurrence: KR)
  Receive Date: 20220930
  Receipt Date: 20220930
  Transmission Date: 20221027
  Serious: Yes (Hospitalization)
  Sender: FDA-Public Use
  Company Number: KR-ORGANON-O2209KOR001544

PATIENT
  Age: 50 Year
  Sex: Female
  Weight: 42.1 kg

DRUGS (22)
  1. REMERON SOLTAB [Suspect]
     Active Substance: MIRTAZAPINE
     Dosage: 7.5 MILLIGRAM, ORALLY DISINTEGRATING TABLET
     Route: 048
     Dates: start: 20141001
  2. MEFENAMIC ACID [Concomitant]
     Active Substance: MEFENAMIC ACID
     Dosage: 250 MILLIGRAM, HARD CAPSULE POWDERED
     Route: 048
     Dates: start: 20140828, end: 20141006
  3. CHLORPHENIRAMINE MALEATE [Concomitant]
     Active Substance: CHLORPHENIRAMINE MALEATE
     Dosage: 4 MILLIGRAM
     Route: 042
     Dates: start: 20140828, end: 20140828
  4. ZOLPIDEM TARTRATE [Concomitant]
     Active Substance: ZOLPIDEM TARTRATE
     Dosage: 12.5 MILLIGRAM
     Route: 048
     Dates: start: 20120513
  5. ZOLPIDEM TARTRATE [Concomitant]
     Active Substance: ZOLPIDEM TARTRATE
     Dosage: 12.5 MILLIGRAM
     Route: 048
     Dates: start: 20140828
  6. MAGNESIUM HYDROXIDE [Concomitant]
     Active Substance: MAGNESIUM HYDROXIDE
     Dosage: 500 MILLIGRAM
     Route: 048
     Dates: start: 20140828, end: 20140828
  7. HERBALS [Concomitant]
     Active Substance: HERBALS
     Dosage: 60 MILLIGRAM
     Route: 048
     Dates: start: 20140927
  8. CEFDINIR [Concomitant]
     Active Substance: CEFDINIR
     Dosage: 100 MILLIGRAM, (FORMULATION REPORTED AS HARD CAPSULES, GRANULES)
     Route: 048
     Dates: start: 20140927, end: 20141003
  9. MUPIROCIN [Concomitant]
     Active Substance: MUPIROCIN
     Dosage: 10 GRAM
     Route: 061
     Dates: start: 20140927, end: 20140927
  10. MUPIROCIN [Concomitant]
     Active Substance: MUPIROCIN
     Dosage: 10 GRAM
     Route: 061
     Dates: start: 20140927
  11. LORAZEPAM [Concomitant]
     Active Substance: LORAZEPAM
     Dosage: 1 MILLIGRAM
     Route: 048
     Dates: start: 20141001, end: 20141002
  12. CLONAZEPAM [Concomitant]
     Active Substance: CLONAZEPAM
     Dosage: 0.25 MILLIGRAM
     Route: 048
     Dates: start: 20141001
  13. ACETAMINOPHEN [Concomitant]
     Active Substance: ACETAMINOPHEN
     Dosage: 1300 MILLIGRAM
     Dates: start: 20141002
  14. ZOLEDRONIC ACID [Concomitant]
     Active Substance: ZOLEDRONIC ACID
     Dosage: 4 MILLIGRAM
     Route: 042
     Dates: start: 20141030
  15. CEFIXIME [Concomitant]
     Active Substance: CEFIXIME
     Dosage: 100 MILLIGRAM, (FORMULATION REPORTED AS HARD CAPSULE, POWDER)
     Route: 048
     Dates: start: 20141211
  16. MIDAZOLAM [Concomitant]
     Active Substance: MIDAZOLAM
     Dosage: 5 MILLIGRAM
     Route: 042
     Dates: start: 20140806
  17. GABAPENTIN [Concomitant]
     Active Substance: GABAPENTIN
     Dosage: 300 MILLIGRAM, (FORMULATION REPORTED AS HARD CAPSULE, POWDER)
     Route: 048
     Dates: start: 20150107
  18. GABAPENTIN [Concomitant]
     Active Substance: GABAPENTIN
     Dosage: 300 MILLIGRAM, (FORMULATION REPORTED AS HARD CAPSULE, POWDER)
     Route: 048
     Dates: start: 20150107, end: 20150325
  19. ACETAMINOPHEN [Concomitant]
     Active Substance: ACETAMINOPHEN
     Dosage: 650 MILLIGRAM, (FORMULATION REPORTED AS SUSTAINED RELEASED FILM-COATED TABLET)
     Route: 048
     Dates: start: 20150110, end: 20150114
  20. CEFOTIAM HYDROCHLORIDE [Concomitant]
     Active Substance: CEFOTIAM HYDROCHLORIDE
     Dosage: 1 GRAM
     Dates: start: 20150111
  21. LEVETIRACETAM [Concomitant]
     Active Substance: LEVETIRACETAM
     Dosage: 500 MILLIGRAM
     Route: 048
     Dates: start: 20140731
  22. URSODIOL [Concomitant]
     Active Substance: URSODIOL
     Dosage: 100 MILLIGRAM
     Route: 048
     Dates: start: 20140802, end: 20150410

REACTIONS (1)
  - Wound dehiscence [Recovered/Resolved with Sequelae]

NARRATIVE: CASE EVENT DATE: 20150112
